FAERS Safety Report 7771538-4 (Version None)
Quarter: 2011Q3

REPORT INFORMATION
  Report Type: 
  Country: None (occurrence: None)
  Receive Date: 20110922
  Receipt Date: 20110223
  Transmission Date: 20111222
  Serious: Yes (Other)
  Sender: FDA-Public Use
  Company Number: US-ASTRAZENECA-2007UW06361

PATIENT
  Age: 527 Month
  Sex: Female
  Weight: 95.3 kg

DRUGS (17)
  1. ADALAT CC [Concomitant]
     Dosage: 1 TAB BY M
     Dates: start: 20001114
  2. CIMETIDINE [Concomitant]
     Dates: start: 20010117
  3. RISPERDAL [Suspect]
     Dates: start: 20000901
  4. RISPERDAL [Suspect]
     Dosage: 1/2 TAB
     Dates: start: 20000905
  5. CLONAZEPAM [Concomitant]
     Dosage: 1 TAB BY M AND 1 TAB TWICE
     Dates: start: 20001110
  6. WELLBUTRIN XL [Concomitant]
     Dates: start: 20050424
  7. TRILEPTAL [Concomitant]
     Dosage: 300-450 MG
     Dates: start: 20050424
  8. LITHOBID [Concomitant]
     Dosage: 1 EVERY MORNING
     Dates: start: 20000905
  9. SEROQUEL [Suspect]
     Dosage: 25-900 MG
     Route: 048
     Dates: start: 20010105
  10. ADALAT CC [Concomitant]
     Dates: start: 20010117
  11. CIMETIDINE [Concomitant]
     Dosage: 1 TAB BY M
     Dates: start: 20001114
  12. SEROQUEL [Suspect]
     Dosage: 2 TAB
     Route: 048
     Dates: start: 20001110
  13. LEXAPRO [Concomitant]
     Dosage: 10-20 MG
     Dates: start: 20050424
  14. SEROQUEL [Suspect]
     Indication: SCHIZOAFFECTIVE DISORDER
     Dosage: 50 MG - 900 MG
     Route: 048
     Dates: start: 20001101
  15. REMERON [Concomitant]
     Dosage: 15-30 MG
     Dates: start: 20000914
  16. REMERON [Concomitant]
     Dosage: 1 EVERY MORNING AND 1 TAB AT B
     Dates: start: 20001110
  17. CLONAZEPAM [Concomitant]
     Dosage: 0.5-1 MG
     Route: 048
     Dates: start: 20010105

REACTIONS (3)
  - PANCREATITIS [None]
  - DIABETES MELLITUS [None]
  - WEIGHT INCREASED [None]
